FAERS Safety Report 8911113 (Version 1)
Quarter: 2012Q4

REPORT INFORMATION
  Report Type: 
  Country: US (occurrence: US)
  Receive Date: 20121115
  Receipt Date: 20121115
  Transmission Date: 20130627
  Serious: No
  Sender: FDA-Public Use
  Company Number: US-AMGEN-USASP2012028615

PATIENT
  Sex: Female
  Weight: 85.71 kg

DRUGS (1)
  1. VECTIBIX [Suspect]
     Indication: COLORECTAL CANCER
     Dosage: 510 mg, q2wk
     Route: 042
     Dates: start: 20120322

REACTIONS (3)
  - Skin disorder [Not Recovered/Not Resolved]
  - Acne [Not Recovered/Not Resolved]
  - Rash erythematous [Not Recovered/Not Resolved]
